FAERS Safety Report 8586540 (Version 4)
Quarter: 2012Q4

REPORT INFORMATION
  Report Type: 
  Country: BR (occurrence: BR)
  Receive Date: 20120530
  Receipt Date: 20120906
  Transmission Date: 20130627
  Serious: Yes (Hospitalization, Other)
  Sender: FDA-Public Use
  Company Number: PHHY2012BR045439

PATIENT
  Age: 60 None
  Sex: Female

DRUGS (4)
  1. DIOVAN HCT [Suspect]
     Indication: HYPERTENSION
     Dosage: 1 DF(160 mg vals / 25mg HCTZ), daily
     Dates: start: 2010
  2. DIOVAN HCT [Suspect]
     Dosage: 1 DF(160 mg vals / 25mg HCTZ), daily
     Dates: start: 201205
  3. DIOVAN [Suspect]
     Dosage: 160 mg,
  4. HYDROCHLOROTHIAZIDE [Suspect]

REACTIONS (13)
  - Pain [Unknown]
  - Dizziness [Not Recovered/Not Resolved]
  - Nephrolithiasis [Not Recovered/Not Resolved]
  - Cholelithiasis [Not Recovered/Not Resolved]
  - Pneumonia [Recovered/Resolved]
  - Cardiac disorder [Not Recovered/Not Resolved]
  - Blood pressure fluctuation [Not Recovered/Not Resolved]
  - Headache [Unknown]
  - Spinal pain [Not Recovered/Not Resolved]
  - Malaise [Unknown]
  - Drug dispensing error [Unknown]
  - Urinary tract infection [Not Recovered/Not Resolved]
  - Influenza [Recovered/Resolved]
